FAERS Safety Report 7195626-9 (Version None)
Quarter: 2010Q4

REPORT INFORMATION
  Report Type: 
  Country: None (occurrence: None)
  Receive Date: 20101223
  Receipt Date: 20101217
  Transmission Date: 20110411
  Serious: Yes (Death)
  Sender: FDA-Public Use
  Company Number: KR-MERCK-1012KOR00036

PATIENT
  Age: 75 Year
  Sex: Male

DRUGS (5)
  1. CANCIDAS [Suspect]
     Indication: SYSTEMIC CANDIDA
     Route: 065
  2. CEFEPIME [Concomitant]
     Indication: SYSTEMIC CANDIDA
     Route: 065
  3. FLUCONAZOLE [Concomitant]
     Indication: SYSTEMIC CANDIDA
     Route: 065
  4. AMPHOTERICIN B [Concomitant]
     Indication: SYSTEMIC CANDIDA
     Route: 065
  5. METRONIDAZOLE [Concomitant]
     Indication: SYSTEMIC CANDIDA
     Route: 065

REACTIONS (3)
  - DRUG INEFFECTIVE [None]
  - MULTI-ORGAN FAILURE [None]
  - SEPSIS [None]
